FAERS Safety Report 14525342 (Version 1)
Quarter: 2018Q1

REPORT INFORMATION
  Report Type: Spontaneous
  Country: DE (occurrence: DE)
  Receive Date: 20180213
  Receipt Date: 20180213
  Transmission Date: 20180509
  Serious: Yes (Other)
  Sender: FDA-Public Use
  Company Number: DE-BAYER-2018-025483

PATIENT
  Age: 65 Year

DRUGS (2)
  1. METRONIDAZOLE. [Suspect]
     Active Substance: METRONIDAZOLE
     Indication: OSTEOMYELITIS
     Dosage: 1 G, UNK
  2. CIPROFLOXACIN. [Suspect]
     Active Substance: CIPROFLOXACIN
     Indication: OSTEOMYELITIS
     Dosage: 1.5 G, QD

REACTIONS (5)
  - Dyschromatopsia [None]
  - Diabetic retinopathy [None]
  - Visual field defect [None]
  - Visual impairment [Recovering/Resolving]
  - Toxic optic neuropathy [None]
